FAERS Safety Report 4832422-9 (Version None)
Quarter: 2005Q4

REPORT INFORMATION
  Report Type: 
  Country: None (occurrence: None)
  Receive Date: 20051117
  Receipt Date: 20051117
  Transmission Date: 20060501
  Serious: Yes (Other)
  Sender: FDA-Public Use
  Company Number: None

PATIENT
  Age: 70 Year
  Sex: Female
  Weight: 62.5964 kg

DRUGS (7)
  1. TAXOTERE [Suspect]
     Indication: BLADDER CANCER
     Dosage: 128.25 MG /Q3 WEEK/IV
     Route: 042
     Dates: start: 20051011
  2. GLEEVEC [Suspect]
     Indication: BLADDER CANCER
     Dosage: 600 MG/QD FOR  6 DAYS/PO
     Route: 048
     Dates: start: 20051007, end: 20051012
  3. LORA TAB [Concomitant]
  4. TRADADONE [Concomitant]
  5. NYSTATIN [Concomitant]
  6. ACYCLOVIR [Concomitant]
  7. NAPROSEN [Concomitant]

REACTIONS (3)
  - BLOOD ALKALINE PHOSPHATASE INCREASED [None]
  - DISEASE PROGRESSION [None]
  - LIVER DISORDER [None]
